FAERS Safety Report 16015217 (Version 1)
Quarter: 2019Q1

REPORT INFORMATION
  Report Type: Report from Study
  Country: None (occurrence: BR)
  Receive Date: 20190228
  Receipt Date: 20190228
  Transmission Date: 20190418
  Serious: Yes (Other)
  Sender: FDA-Public Use
  Company Number: BR-ABBVIE-18K-020-2319966-00

PATIENT
  Sex: Female

DRUGS (2)
  1. HUMIRA [Suspect]
     Active Substance: ADALIMUMAB
     Route: 058
  2. HUMIRA [Suspect]
     Active Substance: ADALIMUMAB
     Indication: RHEUMATOID ARTHRITIS
     Route: 058
     Dates: start: 20170226

REACTIONS (9)
  - Wound infection bacterial [Recovered/Resolved]
  - Erythema [Unknown]
  - Drug ineffective [Unknown]
  - Inflammation of wound [Recovered/Resolved]
  - Furuncle [Unknown]
  - Arthritis [Unknown]
  - Arthralgia [Unknown]
  - Irritability [Unknown]
  - Bacterial sepsis [Recovered/Resolved]
